FAERS Safety Report 5566751-0 (Version None)
Quarter: 2007Q4

REPORT INFORMATION
  Report Type: 
  Country: None (occurrence: None)
  Receive Date: 20071219
  Receipt Date: 20071210
  Transmission Date: 20080405
  Serious: Yes (Hospitalization)
  Sender: FDA-Public Use
  Company Number: RU-ELI_LILLY_AND_COMPANY-RU200710007136

PATIENT
  Sex: Female
  Weight: 27 kg

DRUGS (6)
  1. STRATTERA [Suspect]
     Indication: ATTENTION DEFICIT/HYPERACTIVITY DISORDER
     Dosage: 18 MG, DAILY (1/D)
     Dates: start: 20070918
  2. STRATTERA [Suspect]
     Dosage: 18 MG, 2/D
     Route: 048
     Dates: start: 20070921, end: 20070928
  3. TISERCIN [Concomitant]
     Indication: ABNORMAL BEHAVIOUR
     Dosage: 12.5 MG, 3/D
     Route: 048
     Dates: start: 20070827, end: 20070828
  4. TISERCIN [Concomitant]
     Dosage: 25 MG, 3/D
     Dates: start: 20070828
  5. ATARAX /00058401/ [Concomitant]
     Indication: ANXIETY DISORDER
     Dosage: 12.5 MG, 3/D
     Route: 048
     Dates: start: 20070831, end: 20070918
  6. DRIPTANE [Concomitant]
     Indication: ENURESIS
     Dosage: 5 MG, EACH EVENING
     Route: 048
     Dates: start: 20070905

REACTIONS (4)
  - HOSPITALISATION [None]
  - MOOD SWINGS [None]
  - PSYCHOMOTOR HYPERACTIVITY [None]
  - TACHYCARDIA [None]
